FAERS Safety Report 5326257-0 (Version None)
Quarter: 2007Q2

REPORT INFORMATION
  Report Type: 
  Country: None (occurrence: None)
  Receive Date: 20070516
  Receipt Date: 20070504
  Transmission Date: 20071010
  Serious: Yes (Hospitalization)
  Sender: FDA-Public Use
  Company Number: AU-GENENTECH-241084

PATIENT
  Sex: Female
  Weight: 55 kg

DRUGS (4)
  1. RANIBIZUMAB [Suspect]
     Indication: MACULAR DEGENERATION
     Dosage: 0.3 MG, 1/MONTH
     Route: 031
     Dates: start: 20070323
  2. ANTICOAGULANTS [Suspect]
     Indication: DRUG USE FOR UNKNOWN INDICATION
  3. ALPRAZOLAM [Concomitant]
     Indication: DRUG USE FOR UNKNOWN INDICATION
  4. VALIUM [Concomitant]
     Indication: DRUG USE FOR UNKNOWN INDICATION

REACTIONS (1)
  - ISCHAEMIA [None]
